FAERS Safety Report 22071345 (Version 1)
Quarter: 2023Q1

REPORT INFORMATION
  Report Type: Spontaneous
  Country: US (occurrence: US)
  Receive Date: 20230307
  Receipt Date: 20230307
  Transmission Date: 20230418
  Serious: No
  Sender: FDA-Public Use
  Company Number: US-ELI_LILLY_AND_COMPANY-US202303001210

PATIENT
  Age: 63 Year
  Sex: Female
  Weight: 57.14 kg

DRUGS (3)
  1. ADCIRCA [Suspect]
     Active Substance: TADALAFIL
     Indication: Pulmonary arterial hypertension
     Dosage: UNK, UNKNOWN
     Route: 065
  2. AMBRISENTAN [Suspect]
     Active Substance: AMBRISENTAN
     Indication: Product used for unknown indication
     Dosage: UNK, UNKNOWN
     Route: 065
  3. REMODULIN [Suspect]
     Active Substance: TREPROSTINIL
     Indication: Pulmonary arterial hypertension
     Dosage: 0.043 UG/KG, UNKNOWN
     Route: 042
     Dates: start: 20220120

REACTIONS (4)
  - Erythema [Unknown]
  - Weight decreased [Unknown]
  - Headache [Unknown]
  - Hot flush [Unknown]

NARRATIVE: CASE EVENT DATE: 20230201
